FAERS Safety Report 4909027-4 (Version None)
Quarter: 2006Q1

REPORT INFORMATION
  Report Type: 
  Country: None (occurrence: None)
  Receive Date: 20060213
  Receipt Date: 20051226
  Transmission Date: 20060701
  Serious: Yes (Hospitalization, Congenital Anomaly, Other)
  Sender: FDA-Public Use
  Company Number: JP-SOLVAY-00305004306

PATIENT
  Age: 1 Day
  Sex: Female
  Weight: 2.885 kg

DRUGS (4)
  1. LUVOX [Suspect]
     Indication: DRUG EXPOSURE DURING PREGNANCY
     Dosage: DAILY DOSE: 125 MILLIGRAM(S), AS USED: 50 MG - 25 MG - 50 MG
     Route: 064
     Dates: end: 20050204
  2. LEXOTAN [Suspect]
     Indication: DRUG EXPOSURE DURING PREGNANCY
     Dosage: DAILY DOSE: 4 MILLIGRAM(S)
     Route: 064
     Dates: end: 20050204
  3. LORAZEPAM [Suspect]
     Indication: DRUG EXPOSURE DURING PREGNANCY
     Dosage: DAILY DOSE: 0.5 MG AS NEEDED
     Route: 064
     Dates: end: 20050204
  4. MYSLEE [Suspect]
     Indication: DRUG EXPOSURE DURING PREGNANCY
     Dosage: DAILY DOSE: 10 MG AS NEEDED.
     Route: 064
     Dates: end: 20050204

REACTIONS (5)
  - DEVELOPMENTAL DELAY [None]
  - DRUG WITHDRAWAL SYNDROME NEONATAL [None]
  - HYPOTONIA NEONATAL [None]
  - RESPIRATORY DISORDER NEONATAL [None]
  - TREMOR NEONATAL [None]
